FAERS Safety Report 8222494-6 (Version None)
Quarter: 2012Q1

REPORT INFORMATION
  Report Type: 
  Country: None (occurrence: None)
  Receive Date: 20120320
  Receipt Date: 20120309
  Transmission Date: 20120608
  Serious: Yes (Other)
  Sender: FDA-Public Use
  Company Number: PHHY2011JP09523

PATIENT
  Sex: Female
  Weight: 58 kg

DRUGS (18)
  1. NITRODERM [Concomitant]
     Dosage: 1 DF, TID
     Route: 062
  2. BAYCARON [Concomitant]
     Indication: HYPERTENSION
     Dosage: 12.5 MG, UNK
     Dates: start: 20080128, end: 20100824
  3. BEZATOL - SLOW RELEASE [Concomitant]
     Dosage: 400 MG,
     Route: 048
  4. EPLERENONE [Interacting]
     Indication: HYPERTENSION
     Dosage: 50 MG,
     Dates: start: 20081010, end: 20100726
  5. CONIEL [Concomitant]
     Indication: HYPERTENSION
     Dosage: 8 MG, UNK
     Dates: start: 20100824
  6. CARVEDILOL [Concomitant]
     Indication: HYPERTENSION
     Dosage: 2.5 MG,
     Dates: start: 20100421, end: 20100518
  7. DOXAZOSIN MESYLATE [Concomitant]
     Indication: HYPERTENSION
     Dosage: 2 MG
     Dates: start: 20100421, end: 20100824
  8. DOXAZOSIN MESYLATE [Concomitant]
     Dosage: 4 MG, UNK
     Dates: start: 20100826
  9. TELMISARTAN AND HYDROCHLOROTHIAZIDE [Concomitant]
     Indication: HYPERTENSION
     Dosage: 1 DF, UNK
     Route: 048
     Dates: start: 20100903
  10. OLMESARTAN MEDOXOMIL [Concomitant]
     Dosage: 20 MG,
     Dates: start: 20090118
  11. NORVASC [Concomitant]
     Indication: HYPERTENSION
     Dosage: 10 MG, UNK
     Dates: start: 20091215, end: 20100824
  12. ALISKIREN [Suspect]
     Indication: HYPERTENSION
     Dosage: 150 MG, DAILY
     Route: 048
     Dates: start: 20100519, end: 20100824
  13. EPLERENONE [Interacting]
     Dosage: 25 MG
     Dates: start: 20100727
  14. GLIMICRON [Concomitant]
     Dosage: 40 MG,
     Route: 048
  15. OLMESARTAN MEDOXOMIL [Concomitant]
     Indication: HYPERTENSION
     Dosage: 40 MG,
     Dates: start: 20090128
  16. BEZATOL - SLOW RELEASE [Concomitant]
     Dosage: 200 MG,
     Route: 048
  17. CANDESARTAN CILEXETIL AND HYDROCHLOROTHIAZIDE [Concomitant]
     Indication: HYPERTENSION
     Dosage: 1 DF, UNK
     Dates: start: 20100824, end: 20100902
  18. LASIX [Concomitant]
     Indication: HYPERTENSION
     Route: 048
     Dates: start: 20100824

REACTIONS (5)
  - ANGIOEDEMA [None]
  - DRUG INTERACTION [None]
  - BLOOD PRESSURE DECREASED [None]
  - HYPERKALAEMIA [None]
  - OEDEMA PERIPHERAL [None]
